FAERS Safety Report 7450324-9 (Version None)
Quarter: 2011Q2

REPORT INFORMATION
  Report Type: 
  Country: None (occurrence: None)
  Receive Date: 20110502
  Receipt Date: 20110427
  Transmission Date: 20111010
  Serious: Yes (Hospitalization)
  Sender: FDA-Public Use
  Company Number: JP-BAYER-200914691BYL

PATIENT
  Age: 76 Year
  Sex: Male

DRUGS (4)
  1. LAXOBERON [Concomitant]
     Indication: CONSTIPATION
     Dosage: 5 ML (DAILY DOSE), , ORAL
     Route: 048
     Dates: start: 20091017
  2. NEXAVAR [Suspect]
     Dosage: 400 MG (DAILY DOSE), , ORAL
     Route: 048
     Dates: start: 20091107
  3. NEXAVAR [Suspect]
     Dosage: UNK UNK, UNK
     Route: 048
     Dates: start: 20110402
  4. NEXAVAR [Suspect]
     Indication: HEPATIC NEOPLASM MALIGNANT
     Dosage: 400 MG, BID
     Route: 048
     Dates: start: 20090826, end: 20091016

REACTIONS (3)
  - CONSTIPATION [None]
  - HEPATIC ENCEPHALOPATHY [None]
  - BLOOD CREATINE PHOSPHOKINASE INCREASED [None]
